FAERS Safety Report 6807981-7 (Version None)
Quarter: 2010Q2

REPORT INFORMATION
  Report Type: 
  Country: None (occurrence: None)
  Receive Date: 20100629
  Receipt Date: 20090303
  Transmission Date: 20101027
  Serious: No
  Sender: FDA-Public Use
  Company Number: US-PFIZER INC-2009177597

PATIENT
  Age: 65 Year
  Sex: Female

DRUGS (2)
  1. XANAX [Suspect]
     Indication: INSOMNIA
     Dosage: UNK
     Route: 048
  2. LEXAPRO [Suspect]
     Indication: DEPRESSION
     Dosage: 5 MG, 1X/DAY
     Route: 048
     Dates: start: 20090218

REACTIONS (2)
  - ERYTHEMA [None]
  - SOMNOLENCE [None]
